FAERS Safety Report 9002717 (Version 1)
Quarter: 2013Q1

REPORT INFORMATION
  Report Type: Spontaneous
  Country: US (occurrence: US)
  Receive Date: 20130107
  Receipt Date: 20130107
  Transmission Date: 20140127
  Serious: No
  Sender: FDA-Public Use
  Company Number: US-GLAXOSMITHKLINE-A0993947A

PATIENT
  Age: 51 Year
  Sex: Female
  Weight: 81.72 kg

DRUGS (10)
  1. BENLYSTA [Suspect]
     Indication: SYSTEMIC LUPUS ERYTHEMATOSUS
     Route: 042
     Dates: start: 20120501
  2. PREDNISONE [Concomitant]
     Dosage: 20MG PER DAY
  3. PLAQUENIL [Concomitant]
     Dosage: 200MG PER DAY
  4. METFORMIN [Concomitant]
  5. FIORICET [Concomitant]
     Indication: MIGRAINE
  6. LANTUS [Concomitant]
  7. HUMALOG [Concomitant]
  8. UNKNOWN [Concomitant]
     Indication: RASH
  9. DESONIDE [Concomitant]
     Indication: RASH
  10. OLUX [Concomitant]

REACTIONS (4)
  - Rash erythematous [Not Recovered/Not Resolved]
  - Rash [Unknown]
  - Rash pruritic [Unknown]
  - Rash [Unknown]
